FAERS Safety Report 6450327-7 (Version None)
Quarter: 2009Q4

REPORT INFORMATION
  Report Type: 
  Country: None (occurrence: None)
  Receive Date: 20091123
  Receipt Date: 20091112
  Transmission Date: 20100525
  Serious: Yes (Other)
  Sender: FDA-Public Use
  Company Number: US-ROCHE-669605

PATIENT
  Sex: Female
  Weight: 1.5 kg

DRUGS (7)
  1. TAMIFLU [Suspect]
     Indication: H1N1 INFLUENZA
     Dosage: ADMINISTERED FOR 10 DAYS
     Route: 064
  2. CEFTRIAXONE SODIUM [Suspect]
     Indication: DRUG USE FOR UNKNOWN INDICATION
     Route: 064
  3. AZITHROMYCIN [Suspect]
     Indication: DRUG USE FOR UNKNOWN INDICATION
     Route: 064
  4. CEFEPIME [Suspect]
     Indication: DRUG USE FOR UNKNOWN INDICATION
     Route: 064
  5. VANCOMYCIN [Suspect]
     Indication: DRUG USE FOR UNKNOWN INDICATION
     Route: 064
  6. NOREPINEPHRINE BITARTRATE [Suspect]
     Indication: BLOOD PRESSURE
     Route: 064
  7. ACETAMINOPHEN [Concomitant]

REACTIONS (4)
  - APGAR SCORE LOW [None]
  - BRADYCARDIA [None]
  - PREGNANCY [None]
  - SMALL FOR DATES BABY [None]
